FAERS Safety Report 20627766 (Version 1)
Quarter: 2022Q1

REPORT INFORMATION
  Report Type: Spontaneous
  Country: FR (occurrence: FR)
  Receive Date: 20220323
  Receipt Date: 20220323
  Transmission Date: 20220423
  Serious: Yes (Disabling)
  Sender: FDA-Public Use
  Company Number: FR-GSKCCFEMEA-Case-01409882_AE-54329

PATIENT
  Age: 78 Year
  Sex: Male
  Weight: 75 kg

DRUGS (1)
  1. NUCALA [Suspect]
     Active Substance: MEPOLIZUMAB
     Indication: Asthma
     Dosage: 100 MG, Z, 1 TIME IN MONTH
     Dates: start: 20211001, end: 20220201

REACTIONS (7)
  - Oedema [Recovering/Resolving]
  - Inflammation [Recovering/Resolving]
  - Arthralgia [Unknown]
  - Urinary tract infection [Unknown]
  - Blood test abnormal [Unknown]
  - Red blood cell sedimentation rate increased [Unknown]
  - Blood albumin decreased [Unknown]

NARRATIVE: CASE EVENT DATE: 20220105
